FAERS Safety Report 5637843-2 (Version None)
Quarter: 2008Q1

REPORT INFORMATION
  Report Type: 
  Country: None (occurrence: None)
  Receive Date: 20080220
  Receipt Date: 20080205
  Transmission Date: 20080703
  Serious: No
  Sender: FDA-Public Use
  Company Number: 002#2#2008-00040

PATIENT
  Age: 57 Year
  Sex: Male
  Weight: 97.5234 kg

DRUGS (8)
  1. NEUPRO [Suspect]
     Indication: PARKINSON'S DISEASE
     Dosage: 6MG / 24H, 1 IN 1 D, TRANSDERMAL; 2MG / 24H, 1 IN 1 D, TRANSDERMAL; 4MG / 24H, 1 IN 1 D, TRANSDERMAL
     Route: 062
     Dates: start: 20071201, end: 20071201
  2. NEUPRO [Suspect]
     Indication: PARKINSON'S DISEASE
     Dosage: 6MG / 24H, 1 IN 1 D, TRANSDERMAL; 2MG / 24H, 1 IN 1 D, TRANSDERMAL; 4MG / 24H, 1 IN 1 D, TRANSDERMAL
     Route: 062
     Dates: start: 20071201, end: 20071201
  3. NEUPRO [Suspect]
     Indication: PARKINSON'S DISEASE
     Dosage: 6MG / 24H, 1 IN 1 D, TRANSDERMAL; 2MG / 24H, 1 IN 1 D, TRANSDERMAL; 4MG / 24H, 1 IN 1 D, TRANSDERMAL
     Route: 062
     Dates: start: 20080101
  4. STALEVO 100 [Concomitant]
  5. AMBIEN [Concomitant]
  6. AMANTADINE HCL [Concomitant]
  7. FINASTERIDE [Concomitant]
  8. CELEBREX [Concomitant]

REACTIONS (5)
  - APPLICATION SITE ERYTHEMA [None]
  - APPLICATION SITE PRURITUS [None]
  - APPLICATION SITE RASH [None]
  - APPLICATION SITE SWELLING [None]
  - SWELLING [None]
